FAERS Safety Report 22251045 (Version 1)
Quarter: 2023Q2

REPORT INFORMATION
  Report Type: Spontaneous
  Country: CN (occurrence: CN)
  Receive Date: 20230425
  Receipt Date: 20230425
  Transmission Date: 20230722
  Serious: Yes (Other)
  Sender: FDA-Public Use
  Company Number: CN-ELI_LILLY_AND_COMPANY-CN202304009190

PATIENT
  Age: 51 Year
  Sex: Male

DRUGS (2)
  1. RAMUCIRUMAB [Suspect]
     Active Substance: RAMUCIRUMAB
     Indication: Gastric cancer
     Dosage: 400 MG, 2/M (AT ONCE IN 14 DAYS)
     Route: 042
     Dates: start: 20230324, end: 20230405
  2. PACLITAXEL [Suspect]
     Active Substance: PACLITAXEL
     Indication: Gastric cancer
     Dosage: 200 MG, 2/M
     Route: 042
     Dates: start: 20230324, end: 20230405

REACTIONS (2)
  - Jaundice [Unknown]
  - Blood bilirubin increased [Unknown]

NARRATIVE: CASE EVENT DATE: 20230405
